FAERS Safety Report 5219312-7 (Version None)
Quarter: 2007Q1

REPORT INFORMATION
  Report Type: 
  Country: None (occurrence: None)
  Receive Date: 20061121
  Receipt Date: 20060911
  Transmission Date: 20070707
  Serious: No
  Sender: FDA-Public Use
  Company Number: TPA2006A01575

PATIENT
  Age: 52 Year
  Sex: Female
  Weight: 81.6475 kg

DRUGS (2)
  1. ROZEREM [Suspect]
     Indication: SLEEP DISORDER
  2. ZOLOFT [Suspect]

REACTIONS (1)
  - INITIAL INSOMNIA [None]
